FAERS Safety Report 8736708 (Version 4)
Quarter: 2013Q4

REPORT INFORMATION
  Report Type: Spontaneous
  Country: US (occurrence: US)
  Receive Date: 20120822
  Receipt Date: 20131018
  Transmission Date: 20140711
  Serious: Yes (Hospitalization, Other)
  Sender: FDA-Public Use
  Company Number: US-BAYER-2012-084071

PATIENT
  Age: 19 Year
  Sex: Female
  Weight: 83 kg

DRUGS (9)
  1. YASMIN [Suspect]
     Indication: CONTRACEPTION
     Dosage: UNK
     Dates: start: 20030228, end: 20030816
  2. IBUPROFEN [Concomitant]
     Indication: PAIN IN EXTREMITY
  3. IBUPROFEN [Concomitant]
     Indication: LOCAL SWELLING
  4. PERCOCET [Concomitant]
     Indication: PAIN
  5. ALBUTEROL [Concomitant]
  6. PROVENTIL [Concomitant]
     Dosage: 2 PUFF EVERY HOURS PRN AS NEEDED
  7. AZMACORT [Concomitant]
  8. ALLEGRA-D [Concomitant]
     Dosage: UNK UNK, BID
  9. BACTROBAN [Concomitant]
     Dosage: UNK UNK, TID

REACTIONS (12)
  - Pulmonary embolism [Recovered/Resolved]
  - Deep vein thrombosis [None]
  - Thrombophlebitis [None]
  - Phlebitis superficial [None]
  - Pelvic venous thrombosis [None]
  - Pain in extremity [None]
  - Local swelling [None]
  - Injury [None]
  - Dyspnoea [Recovered/Resolved]
  - Chest pain [Recovered/Resolved]
  - Pleurisy [None]
  - Pain [None]
